FAERS Safety Report 9870736 (Version 2)
Quarter: 2014Q4

REPORT INFORMATION
  Report Type: Spontaneous
  Country: US (occurrence: US)
  Receive Date: 20140205
  Receipt Date: 20141017
  Transmission Date: 20150529
  Serious: Yes (Hospitalization, Other)
  Sender: FDA-Public Use
  Company Number: US-009507513-1402USA001283

PATIENT
  Sex: Female
  Weight: 85.71 kg

DRUGS (1)
  1. NUVARING [Suspect]
     Active Substance: ETHINYL ESTRADIOL\ETONOGESTREL
     Indication: CONTRACEPTION
     Dosage: UNK
     Route: 067
     Dates: start: 200604, end: 200701

REACTIONS (7)
  - Hepatic steatosis [Unknown]
  - Hirsutism [Unknown]
  - Diabetes mellitus [Unknown]
  - Nausea [Unknown]
  - Psoriasis [Unknown]
  - Pulmonary embolism [Unknown]
  - Glucose tolerance impaired [Unknown]

NARRATIVE: CASE EVENT DATE: 20070128
